FAERS Safety Report 4865790-2 (Version None)
Quarter: 2005Q4

REPORT INFORMATION
  Report Type: 
  Country: None (occurrence: None)
  Receive Date: 20051220
  Receipt Date: 20051206
  Transmission Date: 20060501
  Serious: Yes (Disabling)
  Sender: FDA-Public Use
  Company Number: 2005P1000632

PATIENT
  Age: 91 Year
  Sex: Male

DRUGS (10)
  1. NICARDIPINE HCL [Suspect]
     Indication: DRUG USE FOR UNKNOWN INDICATION
     Dosage: 140 MG; IV
     Route: 042
     Dates: start: 20051031, end: 20051031
  2. DILTIAZEM HCL [Concomitant]
  3. TRANEXAMIC ACID [Concomitant]
  4. CARBAZOCHROME SODIUM [Concomitant]
  5. SULFONATE [Concomitant]
  6. VITAMEDIN [Concomitant]
  7. CEFTRIAXONE [Concomitant]
  8. GABEXATE MESILATE [Concomitant]
  9. OMEPRAZOLE [Concomitant]
  10. HALOPERIDOL [Concomitant]

REACTIONS (6)
  - CEREBRAL INFARCTION [None]
  - DEPRESSED LEVEL OF CONSCIOUSNESS [None]
  - HYPERTENSIVE ENCEPHALOPATHY [None]
  - MUSCLE SPASMS [None]
  - SPEECH DISORDER [None]
  - TREMOR [None]
